FAERS Safety Report 25410841 (Version 1)
Quarter: 2025Q2

REPORT INFORMATION
  Report Type: Spontaneous
  Country: DE (occurrence: DE)
  Receive Date: 20250609
  Receipt Date: 20250609
  Transmission Date: 20250716
  Serious: Yes (Hospitalization)
  Sender: EMD SERONO INC
  Company Number: None

PATIENT
  Age: 39 Year
  Sex: Female

DRUGS (5)
  1. CHORIOGONADOTROPIN ALFA [Suspect]
     Active Substance: CHORIOGONADOTROPIN ALFA
     Indication: Assisted reproductive technology
  2. FOLLITROPIN ALFA [Suspect]
     Active Substance: FOLLITROPIN ALFA
     Indication: Assisted reproductive technology
     Dosage: 3RD TO 6TH DAY OF CYCLE
  3. FOLLITROPIN ALFA [Suspect]
     Active Substance: FOLLITROPIN ALFA
     Dosage: 7TH TO 10TH DAY OF CYCLE
  4. PROGESTERONE [Suspect]
     Active Substance: PROGESTERONE
     Indication: Assisted reproductive technology
     Dosage: DAY 14 TO 28 OF THE CYCLE
  5. GANIRELIX [Suspect]
     Active Substance: GANIRELIX
     Indication: Assisted reproductive technology
     Dosage: 7TH TO 11TH DAY OF CYCLE

REACTIONS (1)
  - Abdominal discomfort [Recovered/Resolved]

NARRATIVE: CASE EVENT DATE: 20250518
